FAERS Safety Report 17075058 (Version 1)
Quarter: 2019Q4

REPORT INFORMATION
  Report Type: Spontaneous
  Country: BR (occurrence: BR)
  Receive Date: 20191126
  Receipt Date: 20191126
  Transmission Date: 20200122
  Serious: Yes (Other)
  Sender: FDA-Public Use
  Company Number: BR-PFIZER INC-2019506826

PATIENT
  Age: 69 Year
  Sex: Female

DRUGS (1)
  1. XALATAN [Suspect]
     Active Substance: LATANOPROST
     Dosage: UNK
     Dates: start: 2008, end: 2018

REACTIONS (3)
  - Foot fracture [Unknown]
  - Fall [Unknown]
  - Visual impairment [Unknown]

NARRATIVE: CASE EVENT DATE: 2014
